FAERS Safety Report 25772433 (Version 1)
Quarter: 2025Q3

REPORT INFORMATION
  Report Type: Spontaneous
  Country: CN (occurrence: CN)
  Receive Date: 20250908
  Receipt Date: 20250908
  Transmission Date: 20251020
  Serious: Yes (Other)
  Sender: ACCORD
  Company Number: None

PATIENT
  Age: 61 Year
  Sex: Male
  Weight: 60 kg

DRUGS (4)
  1. TRASTUZUMAB [Suspect]
     Active Substance: TRASTUZUMAB
     Indication: Rectal cancer
     Dosage: 300 MILLIGRAM, Q3W IV DRIP
     Route: 042
     Dates: start: 20250715, end: 20250715
  2. BEVACIZUMAB [Suspect]
     Active Substance: BEVACIZUMAB
     Indication: Rectal cancer
     Dosage: 400 MILLIGRAM, Q3W IV DRIP
     Route: 042
     Dates: start: 20250715, end: 20250715
  3. SINTILIMAB [Suspect]
     Active Substance: SINTILIMAB
     Indication: Rectal cancer
     Dosage: 200 MILLIGRAM, Q3W IV DRIP
     Route: 042
     Dates: start: 20250715, end: 20250715
  4. TRIFLURIDINE [Suspect]
     Active Substance: TRIFLURIDINE
     Indication: Rectal cancer
     Dosage: 40 MILLIGRAM, BID, Q2W, D1-5
     Dates: start: 20250715

REACTIONS (2)
  - Product use in unapproved indication [Unknown]
  - Myelosuppression [Unknown]

NARRATIVE: CASE EVENT DATE: 20250805
